FAERS Safety Report 17022610 (Version 3)
Quarter: 2019Q4

REPORT INFORMATION
  Report Type: Not Available
  Country: US (occurrence: US)
  Receive Date: 20191112
  Receipt Date: 20191225
  Transmission Date: 20200122
  Serious: No
  Sender: FDA-Public Use
  Company Number: US-NEUROCRINE BIOSCIENCES INC.-2019NBI03288

PATIENT
  Sex: Female

DRUGS (1)
  1. INGREZZA [Suspect]
     Active Substance: VALBENAZINE
     Indication: TARDIVE DYSKINESIA
     Route: 048
     Dates: start: 20191030

REACTIONS (7)
  - Anxiety [Unknown]
  - Productive cough [Unknown]
  - Depression [Unknown]
  - Dry eye [Unknown]
  - Therapeutic product effect decreased [None]
  - Vision blurred [Unknown]
  - Insomnia [Unknown]

NARRATIVE: CASE EVENT DATE: 2019
